FAERS Safety Report 5195761-0 (Version None)
Quarter: 2007Q1

REPORT INFORMATION
  Report Type: 
  Country: None (occurrence: None)
  Receive Date: 20070102
  Receipt Date: 20061222
  Transmission Date: 20070707
  Serious: Yes (Hospitalization)
  Sender: FDA-Public Use
  Company Number: DE-ROCHE-476247

PATIENT
  Sex: Female

DRUGS (2)
  1. BONIVA [Suspect]
     Indication: DRUG USE FOR UNKNOWN INDICATION
     Dosage: FROM REPORTED AS SYRINGE.
     Route: 042
  2. D3-VICOTRAT [Concomitant]
     Indication: VITAMIN D DEFICIENCY

REACTIONS (4)
  - ARRHYTHMIA [None]
  - POLLAKIURIA [None]
  - PRURITUS [None]
  - SWELLING FACE [None]
